FAERS Safety Report 23989266 (Version 1)
Quarter: 2024Q2

REPORT INFORMATION
  Report Type: Other
  Country: SE (occurrence: SE)
  Receive Date: 20240619
  Receipt Date: 20240619
  Transmission Date: 20240716
  Serious: Yes (Hospitalization, Other)
  Sender: FDA-Public Use
  Company Number: SE-ASTELLAS-2024US017295

PATIENT
  Age: 76 Year
  Sex: Female

DRUGS (4)
  1. REGADENOSON [Suspect]
     Active Substance: REGADENOSON
     Indication: Diagnostic procedure
     Dosage: UNK UNK, TOTAL DOSE
     Route: 065
     Dates: start: 20240415, end: 20240415
  2. REGADENOSON [Suspect]
     Active Substance: REGADENOSON
     Indication: Diagnostic procedure
     Dosage: UNK UNK, TOTAL DOSE
     Route: 065
     Dates: start: 20240415, end: 20240415
  3. REGADENOSON [Suspect]
     Active Substance: REGADENOSON
     Indication: Diagnostic procedure
     Dosage: UNK UNK, TOTAL DOSE
     Route: 065
     Dates: start: 20240415, end: 20240415
  4. REGADENOSON [Suspect]
     Active Substance: REGADENOSON
     Indication: Diagnostic procedure
     Dosage: UNK UNK, TOTAL DOSE
     Route: 065
     Dates: start: 20240415, end: 20240415

REACTIONS (3)
  - Cholangitis [Recovering/Resolving]
  - Abdominal distension [Recovering/Resolving]
  - Constipation [Recovering/Resolving]

NARRATIVE: CASE EVENT DATE: 20240415
